FAERS Safety Report 8359527-2 (Version None)
Quarter: 2012Q2

REPORT INFORMATION
  Report Type: 
  Country: None (occurrence: None)
  Receive Date: 20120515
  Receipt Date: 20120504
  Transmission Date: 20120825
  Serious: Yes (Life-Threatening, Hospitalization, Other)
  Sender: FDA-Public Use
  Company Number: RO-MILLENNIUM PHARMACEUTICALS, INC.-2012-02163

PATIENT

DRUGS (6)
  1. ALLOPURINOL [Concomitant]
     Indication: MULTIPLE MYELOMA
     Dosage: 100 MG, UNK
     Route: 048
  2. VITAMIN B6 [Concomitant]
     Indication: MULTIPLE MYELOMA
     Dosage: UNK
     Route: 048
  3. DEXAMETHASONE [Concomitant]
     Indication: MULTIPLE MYELOMA
     Dosage: 16 MG, UNK
     Route: 042
     Dates: start: 20120316, end: 20120320
  4. VELCADE [Suspect]
     Indication: MULTIPLE MYELOMA
     Dosage: 2.45 MG, UNK
     Route: 042
     Dates: start: 20120316, end: 20120319
  5. FOLIC ACID [Concomitant]
     Indication: MULTIPLE MYELOMA
     Dosage: 5 MG, UNK
     Route: 048
  6. PRILOSEC [Concomitant]
     Indication: MULTIPLE MYELOMA
     Dosage: 20 MG, UNK
     Route: 048
     Dates: start: 20120316, end: 20120320

REACTIONS (5)
  - NAUSEA [None]
  - BLOOD CREATININE INCREASED [None]
  - PYREXIA [None]
  - VOMITING [None]
  - AMYLASE INCREASED [None]
